FAERS Safety Report 10391916 (Version 1)
Quarter: 2014Q3

REPORT INFORMATION
  Report Type: Spontaneous
  Country: IN (occurrence: IN)
  Receive Date: 20140819
  Receipt Date: 20140819
  Transmission Date: 20150326
  Serious: Yes (Death, Hospitalization)
  Sender: FDA-Public Use
  Company Number: PHHY2014IN101829

PATIENT
  Age: 3 Year
  Sex: Male

DRUGS (18)
  1. CAMPATH [Concomitant]
     Active Substance: ALEMTUZUMAB
     Dosage: 10 MG, UNK
  2. RITUXIMAB [Concomitant]
     Active Substance: RITUXIMAB
     Dosage: 2 DF, WEEKLY
  3. FLUDARABINE [Concomitant]
     Active Substance: FLUDARABINE PHOSPHATE
  4. CICLOSPORIN [Suspect]
     Active Substance: CYCLOSPORINE
     Indication: PROPHYLAXIS AGAINST GRAFT VERSUS HOST DISEASE
  5. CAMPATH [Concomitant]
     Active Substance: ALEMTUZUMAB
     Dosage: 0.2 MG/KG, UNK
  6. IMMUNOGLOBULIN I.V [Concomitant]
     Active Substance: HUMAN IMMUNOGLOBULIN G
     Route: 042
  7. ATGAM [Concomitant]
     Active Substance: EQUINE THYMOCYTE IMMUNE GLOBULIN
     Dosage: 15 MG/KG, PER DAY
  8. CYCLOPHOSPHAMIDE. [Suspect]
     Active Substance: CYCLOPHOSPHAMIDE
     Dosage: 50 MG/KG, PER DAY
  9. BUDESONIDE. [Concomitant]
     Active Substance: BUDESONIDE
     Route: 048
  10. FOSCARNET [Concomitant]
     Active Substance: FOSCARNET
  11. METHYLPREDNISOLONE [Suspect]
     Active Substance: METHYLPREDNISOLONE
     Dosage: 0.5 MG/KG, UNK
  12. MYCOPHENOLIC ACID [Suspect]
     Active Substance: MYCOPHENOLIC ACID
     Indication: PROPHYLAXIS AGAINST GRAFT VERSUS HOST DISEASE
  13. TACROLIMUS. [Suspect]
     Active Substance: TACROLIMUS
  14. INFLIXIMAB [Suspect]
     Active Substance: INFLIXIMAB
     Dosage: 5 MG/KG, UNK
  15. SIROLIMUS. [Concomitant]
     Active Substance: SIROLIMUS
  16. IMMUNOGLOBULIN I.V [Concomitant]
     Active Substance: HUMAN IMMUNOGLOBULIN G
     Route: 048
  17. TREOSULFAN [Concomitant]
     Active Substance: TREOSULFAN
  18. THIOTEPA. [Concomitant]
     Active Substance: THIOTEPA

REACTIONS (17)
  - Rash [Recovering/Resolving]
  - Graft versus host disease in liver [Recovering/Resolving]
  - Epstein-Barr virus infection [Recovered/Resolved]
  - Pyrexia [Unknown]
  - Diarrhoea [Recovering/Resolving]
  - Faecal volume increased [Recovering/Resolving]
  - Graft versus host disease in gastrointestinal tract [Recovering/Resolving]
  - Platelet count decreased [Unknown]
  - Hyperbilirubinaemia [Recovering/Resolving]
  - Blood alkaline phosphatase increased [Recovering/Resolving]
  - Rotavirus infection [Unknown]
  - Convulsion [Unknown]
  - Condition aggravated [Unknown]
  - Pneumonia cytomegaloviral [Fatal]
  - Respiratory distress [Fatal]
  - Jaundice [Recovering/Resolving]
  - White blood cell count decreased [Unknown]
